FAERS Safety Report 5487351-7 (Version None)
Quarter: 2007Q4

REPORT INFORMATION
  Report Type: 
  Country: None (occurrence: None)
  Receive Date: 20071016
  Receipt Date: 20071012
  Transmission Date: 20080405
  Serious: Yes (Other)
  Sender: FDA-Public Use
  Company Number: CH-ROXANE LABORATORIES, INC-2007-DE-06063GD

PATIENT
  Sex: Male

DRUGS (7)
  1. SERTRALINE [Suspect]
     Indication: OBSESSIVE-COMPULSIVE DISORDER
     Dates: start: 20030901
  2. SERTRALINE [Suspect]
  3. SERTRALINE [Suspect]
  4. RISPERIDONE [Suspect]
     Indication: SCHIZOPHRENIA
     Route: 030
     Dates: start: 20030901
  5. RISPERIDONE [Suspect]
     Indication: AGGRESSION
     Route: 048
     Dates: end: 20041201
  6. OLANZAPINE [Suspect]
     Indication: SCHIZOPHRENIA
     Dosage: 10 MG; UP-TITRATED TO 15 MG (1 WEEK), THEN 20 MG
     Dates: start: 20041201
  7. OLANZAPINE [Suspect]
     Indication: AGGRESSION

REACTIONS (12)
  - AKATHISIA [None]
  - BLEPHAROSPASM [None]
  - CONDITION AGGRAVATED [None]
  - CONJUNCTIVITIS [None]
  - DRY EYE [None]
  - DYSPEPSIA [None]
  - HYPOMANIA [None]
  - MUSCLE SPASMS [None]
  - PSYCHOMOTOR SKILLS IMPAIRED [None]
  - RESTLESSNESS [None]
  - TENSION [None]
  - TREMOR [None]
